FAERS Safety Report 8954083 (Version 1)
Quarter: 2012Q4

REPORT INFORMATION
  Report Type: 
  Country: US (occurrence: US)
  Receive Date: 20121206
  Receipt Date: 20121206
  Transmission Date: 20130627
  Serious: Yes (Hospitalization)
  Sender: FDA-Public Use
  Company Number: US-VERTEX PHARMACEUTICALS INC.-2012-025560

PATIENT
  Sex: Male
  Weight: 154 kg

DRUGS (6)
  1. VX-950 (TELAPREVIR) [Suspect]
     Indication: HEPATITIS C
     Dosage: 750 mg, tid
     Route: 048
     Dates: start: 2012
  2. RIBASPHERE [Concomitant]
     Indication: HEPATITIS C
     Dosage: 600 mg, bid
     Dates: start: 2012
  3. PEGASYS [Concomitant]
     Indication: HEPATITIS C
     Dosage: 180 ?g, qw
     Route: 058
     Dates: start: 2012
  4. CYMBALTA [Concomitant]
     Dosage: UNK, qd
  5. AMLODIPINE BESYLATE [Concomitant]
     Dosage: UNK, qd
  6. NAPROXEN                           /00256202/ [Concomitant]
     Dosage: UNK, prn

REACTIONS (1)
  - Infection [Unknown]
